FAERS Safety Report 15268006 (Version 1)
Quarter: 2018Q3

REPORT INFORMATION
  Report Type: Spontaneous
  Country: US (occurrence: US)
  Receive Date: 20180724
  Receipt Date: 20180724
  Transmission Date: 20181010
  Serious: Yes (Hospitalization)
  Sender: FDA-Public Use
  Company Number: None

PATIENT
  Age: 70 Year
  Sex: Male
  Weight: 73.39 kg

DRUGS (2)
  1. CAPECITABINE. [Suspect]
     Active Substance: CAPECITABINE
     Indication: NAUSEA
     Route: 048
     Dates: start: 20180326, end: 20180425
  2. CISPLATIN. [Suspect]
     Active Substance: CISPLATIN
     Indication: NAUSEA
     Route: 042
     Dates: start: 20180326, end: 20180429

REACTIONS (4)
  - Vomiting [None]
  - Nausea [None]
  - Decreased appetite [None]
  - Weight decreased [None]

NARRATIVE: CASE EVENT DATE: 20180601
